FAERS Safety Report 5898195-6 (Version None)
Quarter: 2008Q3

REPORT INFORMATION
  Report Type: 
  Country: None (occurrence: None)
  Receive Date: 20080925
  Receipt Date: 20080912
  Transmission Date: 20090109
  Serious: Yes (Hospitalization, Other)
  Sender: FDA-Public Use
  Company Number: FR-ELI_LILLY_AND_COMPANY-FR200809002750

PATIENT
  Sex: Female

DRUGS (3)
  1. GEMZAR [Suspect]
     Indication: BILE DUCT CANCER RECURRENT
     Dosage: 1.5 G, OTHER (AT DAY 1 , DAY 8 AND DAY15 DURING 6 MONTHS)
     Route: 042
     Dates: end: 20080101
  2. CHRONADALATE [Concomitant]
     Indication: HYPERTENSION
     Dosage: 1 D/F, DAILY (1/D)
     Route: 048
  3. VASTAREL [Concomitant]
     Dosage: 3 D/F, DAILY (1/D)
     Route: 048

REACTIONS (3)
  - DYSPNOEA [None]
  - LEFT VENTRICULAR FAILURE [None]
  - RENAL ARTERY STENOSIS [None]
